FAERS Safety Report 22589078 (Version 1)
Quarter: 2023Q2

REPORT INFORMATION
  Report Type: Report from Study
  Country: US (occurrence: US)
  Receive Date: 20230612
  Receipt Date: 20230612
  Transmission Date: 20230722
  Serious: Yes (Hospitalization)
  Sender: FDA-Public Use
  Company Number: US-GILEAD-2023-0632112

PATIENT
  Age: 20 Year
  Sex: Female

DRUGS (3)
  1. AZTREONAM LYSINE [Suspect]
     Active Substance: AZTREONAM LYSINE
     Indication: Cystic fibrosis
     Dosage: 75 MG INHALE THE CONTENTS OF 1 VIAL VIA PARI ALTERA NEBULIZER 3 TIMES A DAY FOR 28 DAYS ON AND 28 DA
     Route: 055
     Dates: start: 201912
  2. PULMOZYME [Concomitant]
     Active Substance: DORNASE ALFA
     Indication: Cystic fibrosis
     Dosage: 1MG INHALED ONCE DAILY
     Route: 055
     Dates: start: 202208
  3. TOBI PODHALER [Concomitant]
     Active Substance: TOBRAMYCIN
     Indication: Cystic fibrosis
     Dosage: 28 MG INHALE THE CONTENTS OF 4 CAPSULES VIA ORAL INHALATION TWICE DAILY FOR 28 DAYS ON/OFF.
     Route: 055
     Dates: start: 202205

REACTIONS (1)
  - Dyspnoea [Not Recovered/Not Resolved]
